FAERS Safety Report 5428918-1 (Version None)
Quarter: 2007Q3

REPORT INFORMATION
  Report Type: 
  Country: None (occurrence: None)
  Receive Date: 20070829
  Receipt Date: 20070821
  Transmission Date: 20080115
  Serious: Yes (Other)
  Sender: FDA-Public Use
  Company Number: HQWYE759122AUG07

PATIENT
  Sex: Male
  Weight: 15 kg

DRUGS (1)
  1. BENEFIX [Suspect]
     Indication: FACTOR IX DEFICIENCY
     Route: 042
     Dates: start: 20040812

REACTIONS (2)
  - DRUG INEFFECTIVE [None]
  - HAEMARTHROSIS [None]
